FAERS Safety Report 12536402 (Version 1)
Quarter: 2016Q3

REPORT INFORMATION
  Report Type: Spontaneous
  Country: IT (occurrence: IT)
  Receive Date: 20160707
  Receipt Date: 20160707
  Transmission Date: 20161109
  Serious: Yes (Hospitalization)
  Sender: FDA-Public Use
  Company Number: IT-SUN PHARMACEUTICAL INDUSTRIES LTD-2016RR-119785

PATIENT
  Age: 31 Year
  Sex: Male

DRUGS (4)
  1. VOLTAREN [Suspect]
     Active Substance: DICLOFENAC SODIUM
     Indication: BACK PAIN
     Dosage: UNK
     Route: 030
     Dates: start: 20140204, end: 20140223
  2. BRUFEN [Suspect]
     Active Substance: IBUPROFEN
     Indication: BACK PAIN
     Dosage: 1 DOSAGE AS NECESSARY
     Route: 048
     Dates: start: 20140204, end: 20140223
  3. MUSCORIL 4 MG/2 ML SOLUZIONE INIETTABILE PER USO INTRAMUSCOLARE [Suspect]
     Active Substance: THIOCOLCHICOSIDE
     Indication: BACK PAIN
     Dosage: UNK
     Route: 030
     Dates: start: 20140204, end: 20140223
  4. PARACETAMOL [Suspect]
     Active Substance: ACETAMINOPHEN
     Indication: BACK PAIN
     Dosage: UNK
     Route: 065
     Dates: start: 20140204, end: 20140223

REACTIONS (2)
  - Hepatitis [Not Recovered/Not Resolved]
  - Jaundice [Not Recovered/Not Resolved]

NARRATIVE: CASE EVENT DATE: 20140223
